FAERS Safety Report 4632445-9 (Version None)
Quarter: 2005Q2

REPORT INFORMATION
  Report Type: 
  Country: None (occurrence: None)
  Receive Date: 20050401
  Receipt Date: 20050211
  Transmission Date: 20051028
  Serious: Yes (Death, Hospitalization)
  Sender: FDA-Public Use
  Company Number: 03P-163-0230435-00

PATIENT
  Age: 51 Year
  Sex: Male
  Weight: 85.7298 kg

DRUGS (4)
  1. DEPAKOTE [Suspect]
     Indication: BIPOLAR DISORDER
     Dosage: SEE IMAGE
     Route: 048
     Dates: start: 20010709, end: 20010808
  2. DEPAKOTE [Suspect]
     Indication: BIPOLAR DISORDER
     Dosage: SEE IMAGE
     Route: 048
     Dates: start: 20010809, end: 20010913
  3. DEPAKOTE [Suspect]
     Indication: BIPOLAR DISORDER
     Dosage: SEE IMAGE
     Route: 048
     Dates: start: 20010914
  4. ALBUTEROL SULFATE HFA [Concomitant]

REACTIONS (4)
  - DELIRIUM [None]
  - HEPATIC FAILURE [None]
  - HEPATITIS ACUTE [None]
  - JAUNDICE [None]
